FAERS Safety Report 5668043-8 (Version None)
Quarter: 2008Q1

REPORT INFORMATION
  Report Type: 
  Country: None (occurrence: None)
  Receive Date: 20080315
  Receipt Date: 20080209
  Transmission Date: 20080703
  Serious: No
  Sender: FDA-Public Use
  Company Number: US-ABBOTT-08P-163-0437849-00

PATIENT
  Sex: Female
  Weight: 130 kg

DRUGS (9)
  1. HUMIRA [Suspect]
     Indication: PSORIATIC ARTHROPATHY
     Route: 058
     Dates: start: 20080207
  2. HUMIRA [Suspect]
     Indication: PSORIASIS
  3. DIPHENHYDRAMINE HCL [Suspect]
     Indication: DRUG USE FOR UNKNOWN INDICATION
  4. PRINZIDE [Concomitant]
     Indication: HYPERTENSION
     Route: 048
  5. MELOXICAM [Concomitant]
     Indication: PAIN IN EXTREMITY
     Route: 048
  6. PROZASTATIN SODIUM [Concomitant]
     Indication: BLOOD CHOLESTEROL
     Route: 048
  7. FUROSEMIDE [Concomitant]
     Indication: FLUID RETENTION
     Route: 048
  8. BACLIFEN [Concomitant]
     Indication: BACK PAIN
     Route: 048
  9. NEBULIZER TREATMENTS [Concomitant]
     Indication: CHRONIC OBSTRUCTIVE PULMONARY DISEASE
     Route: 055

REACTIONS (3)
  - PRURITUS [None]
  - SOMNOLENCE [None]
  - WOUND [None]
